FAERS Safety Report 10238437 (Version 4)
Quarter: 2015Q2

REPORT INFORMATION
  Report Type: Report from Study
  Country: CA (occurrence: CA)
  Receive Date: 20140616
  Receipt Date: 20150630
  Transmission Date: 20150821
  Serious: Yes (Other)
  Sender: FDA-Public Use
  Company Number: PHHY2014CA073310

PATIENT
  Sex: Male

DRUGS (1)
  1. SANDOSTATIN LAR DEPOT [Suspect]
     Active Substance: OCTREOTIDE ACETATE
     Indication: ACRAL OVERGROWTH
     Dosage: 30 MG, EVERY 4 WEEKS
     Route: 030

REACTIONS (10)
  - Blindness unilateral [Unknown]
  - Peripheral swelling [Unknown]
  - Gait disturbance [Unknown]
  - Mental disorder [Unknown]
  - Eye disorder [Unknown]
  - Limb discomfort [Unknown]
  - Depression [Unknown]
  - Eye swelling [Unknown]
  - Cardiac disorder [Unknown]
  - Hypoaesthesia [Unknown]
